FAERS Safety Report 8560605-3 (Version None)
Quarter: 2012Q3

REPORT INFORMATION
  Report Type: 
  Country: None (occurrence: None)
  Receive Date: 20120802
  Receipt Date: 20120719
  Transmission Date: 20120928
  Serious: Yes (Other)
  Sender: FDA-Public Use
  Company Number: FR-009507513-1205FRA00026

PATIENT

DRUGS (10)
  1. REPAGLINIDE [Suspect]
     Indication: DIABETES MELLITUS
     Dosage: UNK
     Dates: start: 20110501, end: 20110101
  2. ABILIFY [Suspect]
     Indication: BIPOLAR DISORDER
     Dates: start: 19950101, end: 20110101
  3. DIAMICRON [Suspect]
     Indication: DIABETES MELLITUS
     Dates: end: 20110101
  4. METFORMIN HYDROCHLORIDE [Suspect]
     Indication: DIABETES MELLITUS
     Dosage: UNK
     Dates: end: 20110501
  5. DEPAKOTE [Suspect]
     Indication: BIPOLAR DISORDER
     Dosage: UNK
     Dates: end: 20060101
  6. GLUCOPHAGE [Suspect]
     Indication: DIABETES MELLITUS
     Dates: end: 20110101
  7. MEDIATOR [Suspect]
     Indication: DIABETES MELLITUS
     Dosage: UNK
     Dates: start: 20060101, end: 20060101
  8. SITAGLIPTIN PHOSPHATE [Suspect]
     Dosage: UNK
     Route: 048
     Dates: start: 20090401, end: 20110101
  9. RISPERIDONE [Suspect]
     Indication: BIPOLAR DISORDER
     Dates: end: 20110101
  10. INSULIN [Suspect]
     Dosage: UNK
     Dates: start: 20110501

REACTIONS (2)
  - HEPATIC CIRRHOSIS [None]
  - PORTAL HYPERTENSION [None]
